FAERS Safety Report 21943929 (Version 1)
Quarter: 2023Q1

REPORT INFORMATION
  Report Type: Spontaneous
  Country: CN (occurrence: CN)
  Receive Date: 20230202
  Receipt Date: 20230202
  Transmission Date: 20230417
  Serious: Yes (Other)
  Sender: FDA-Public Use
  Company Number: CN-ORGANON-O2301CHN002720

PATIENT
  Age: 37 Year
  Sex: Female

DRUGS (1)
  1. FOSAMAX [Suspect]
     Active Substance: ALENDRONATE SODIUM
     Dosage: UNK
     Route: 048

REACTIONS (4)
  - Oesophageal dilatation [Unknown]
  - Discomfort [Unknown]
  - Gastrooesophageal reflux disease [Unknown]
  - Product use issue [Unknown]

NARRATIVE: CASE EVENT DATE: 20230105
